FAERS Safety Report 10027069 (Version 1)
Quarter: 2014Q1

REPORT INFORMATION
  Report Type: Spontaneous
  Country: DE (occurrence: None)
  Receive Date: 20140319
  Receipt Date: 20140319
  Transmission Date: 20141002
  Serious: Yes (Other)
  Sender: FDA-Public Use
  Company Number: FK201400800

PATIENT
  Age: 45 Year
  Sex: Male
  Weight: 52 kg

DRUGS (2)
  1. MORPHINE SULFATE [Suspect]
     Indication: ABDOMINAL PAIN UPPER
     Dosage: UNKNOWN, DAILY DOSE OF 7.16MG; 6ML H-1, EPIDURAL
     Route: 008
  2. BUPIVACAINE [Suspect]
     Indication: ABDOMINAL PAIN UPPER
     Dosage: UNKNOWN, 6 ML H-1; DAILY DOSE OF 360 MG, EPIDURAL
     Route: 008

REACTIONS (3)
  - Drug interaction [None]
  - Product deposit [None]
  - Soft tissue necrosis [None]
